FAERS Safety Report 6208510-1 (Version None)
Quarter: 2009Q2

REPORT INFORMATION
  Report Type: 
  Country: None (occurrence: None)
  Receive Date: 20090529
  Receipt Date: 20090514
  Transmission Date: 20091009
  Serious: Yes (Hospitalization)
  Sender: FDA-Public Use
  Company Number: FR-GENENTECH-282221

PATIENT
  Sex: Female

DRUGS (2)
  1. BEVACIZUMAB [Suspect]
     Indication: BREAST CANCER
     Dosage: 15 MG/KG, Q3W
     Route: 042
     Dates: start: 20090129
  2. TRASTUZUMAB [Suspect]
     Indication: BREAST CANCER

REACTIONS (3)
  - HYPERTENSION [None]
  - HYPERTHERMIA [None]
  - STRESS [None]
